FAERS Safety Report 9604350 (Version 1)
Quarter: 2013Q4

REPORT INFORMATION
  Report Type: Report from Study
  Country: BR (occurrence: BR)
  Receive Date: 20131008
  Receipt Date: 20131008
  Transmission Date: 20140711
  Serious: Yes (Other)
  Sender: FDA-Public Use
  Company Number: PHHY2013BR108322

PATIENT
  Age: 78 Year
  Sex: Male

DRUGS (9)
  1. FORASEQ [Suspect]
     Dosage: 1 DF, BID
  2. FORASEQ [Suspect]
     Dosage: UNK UKN, UNK
  3. DIGOXIN [Suspect]
     Dosage: UNK UKN, UNK
  4. ENALAPRIL [Suspect]
     Dosage: UNK UKN, UNK
  5. DILTIAZEM [Suspect]
     Dosage: UNK UKN, UNK
  6. WARFARIN [Suspect]
     Dosage: UNK UKN, UNK
  7. ANTIVIRALS [Concomitant]
  8. PNEUMOCOCCAL VACCINES [Concomitant]
     Dosage: UNK
  9. TIOTROPIUM [Concomitant]
     Dosage: 2 DF, PER DAY

REACTIONS (12)
  - Chronic obstructive pulmonary disease [Unknown]
  - Cyanosis [Unknown]
  - Vital capacity decreased [Unknown]
  - Dyspnoea [Recovering/Resolving]
  - Productive cough [Unknown]
  - Emphysema [Unknown]
  - Heart rate irregular [Unknown]
  - Sleep apnoea syndrome [Unknown]
  - Respiratory arrest [Unknown]
  - Middle insomnia [Recovering/Resolving]
  - Overweight [Unknown]
  - Abdominal distension [Unknown]
